FAERS Safety Report 6085245-X (Version None)
Quarter: 2009Q1

REPORT INFORMATION
  Report Type: 
  Country: None (occurrence: None)
  Receive Date: 20090220
  Receipt Date: 20090211
  Transmission Date: 20090719
  Serious: No
  Sender: FDA-Public Use
  Company Number: PH-JNJFOC-20090107448

PATIENT
  Age: 82 Year
  Sex: Female

DRUGS (1)
  1. DOLCET [Suspect]
     Indication: MYALGIA
     Route: 048

REACTIONS (2)
  - SOMNOLENCE [None]
  - TRISMUS [None]
